FAERS Safety Report 14602185 (Version 1)
Quarter: 2018Q1

REPORT INFORMATION
  Report Type: Spontaneous
  Country: RU (occurrence: RU)
  Receive Date: 20180306
  Receipt Date: 20180306
  Transmission Date: 20180509
  Serious: Yes (Hospitalization, Other)
  Sender: FDA-Public Use
  Company Number: RU-ASTRAZENECA-2018SE26507

PATIENT
  Age: 48 Year
  Sex: Male
  Weight: 55 kg

DRUGS (6)
  1. BRILINTA [Suspect]
     Active Substance: TICAGRELOR
     Indication: MYOCARDIAL INFARCTION
     Route: 048
  2. VALS [Concomitant]
  3. BETALOC ZOK [Concomitant]
     Active Substance: METOPROLOL SUCCINATE
     Dates: start: 201704
  4. ALLOPURINOL. [Concomitant]
     Active Substance: ALLOPURINOL
  5. ATORVASTATIN [Concomitant]
     Active Substance: ATORVASTATIN
  6. THROMBO ASS [Concomitant]
     Active Substance: ASPIRIN

REACTIONS (2)
  - Haemorrhagic stroke [Recovered/Resolved with Sequelae]
  - Blood pressure increased [Unknown]
